FAERS Safety Report 7823761-8 (Version None)
Quarter: 2011Q4

REPORT INFORMATION
  Report Type: 
  Country: None (occurrence: None)
  Receive Date: 20111019
  Receipt Date: 20111012
  Transmission Date: 20120403
  Serious: Yes (Other)
  Sender: FDA-Public Use
  Company Number: US-PFIZER INC-2011213019

PATIENT
  Sex: Female
  Weight: 104 kg

DRUGS (13)
  1. FOLIC ACID [Concomitant]
     Dosage: 400 MG, 1X/DAY
  2. OSCAL [Concomitant]
     Dosage: UNK
  3. LOVASTATIN [Concomitant]
     Indication: BLOOD CHOLESTEROL INCREASED
     Dosage: 40 MG, 1X/DAY
  4. DETROL LA [Concomitant]
     Dosage: 4 MG, 1X/DAY
  5. ALLEGRA [Concomitant]
     Dosage: 180 MG, 1X/DAY
  6. TOVIAZ [Suspect]
     Indication: HYPERTONIC BLADDER
     Dosage: 4 MG, 1X/DAY
     Route: 048
     Dates: start: 20110221, end: 20110822
  7. PROPRANOLOL [Concomitant]
     Indication: HYPERTENSION
     Dosage: 10 MG, 2X/DAY
  8. ACETYLSALICYLIC ACID [Concomitant]
     Dosage: 325 MG, 1X/DAY
  9. ALLOPURINOL [Concomitant]
     Indication: GOUT
     Dosage: 100 MG, 1X/DAY
  10. LISINOPRIL [Concomitant]
     Indication: HYPERTENSION
     Dosage: 20 MG, 1X/DAY
  11. PREMARIN [Concomitant]
     Dosage: 0.625 MG, MON - THUR
  12. METFORMIN [Concomitant]
     Indication: DIABETES MELLITUS
     Dosage: 500 MG, 2X/DAY
  13. ZYRTEC [Concomitant]
     Dosage: 10 MG, 1X/DAY

REACTIONS (4)
  - LIP SWELLING [None]
  - SWELLING FACE [None]
  - CONSTIPATION [None]
  - URINARY INCONTINENCE [None]
